FAERS Safety Report 4491367-7 (Version None)
Quarter: 2004Q4

REPORT INFORMATION
  Report Type: 
  Country: None (occurrence: None)
  Receive Date: 20041029
  Receipt Date: 20041019
  Transmission Date: 20050328
  Serious: Yes (Death, Other)
  Sender: FDA-Public Use
  Company Number: KII-2000-0011178

PATIENT
  Sex: Female

DRUGS (1)
  1. OXYCONTIN [Suspect]
     Indication: PAIN
     Dosage: INTRAVENOUS
     Route: 042

REACTIONS (8)
  - AMPUTATION [None]
  - CEREBROVASCULAR ACCIDENT [None]
  - ENDOCARDITIS [None]
  - INTENTIONAL MISUSE [None]
  - MEDICATION ERROR [None]
  - POLYSUBSTANCE ABUSE [None]
  - RENAL FAILURE [None]
  - SEPTIC EMBOLUS [None]
